FAERS Safety Report 14663736 (Version 1)
Quarter: 2018Q1

REPORT INFORMATION
  Report Type: Spontaneous
  Country: US (occurrence: US)
  Receive Date: 20180321
  Receipt Date: 20180321
  Transmission Date: 20180509
  Serious: No
  Sender: FDA-Public Use
  Company Number: US-PFIZER INC-2018116950

PATIENT
  Sex: Female

DRUGS (2)
  1. CALCIUM CHLORIDE. [Suspect]
     Active Substance: CALCIUM CHLORIDE
     Dosage: UNK
  2. AMBIEN [Suspect]
     Active Substance: ZOLPIDEM TARTRATE

REACTIONS (1)
  - Drug hypersensitivity [Unknown]
